FAERS Safety Report 19310882 (Version 2)
Quarter: 2021Q2

REPORT INFORMATION
  Report Type: Spontaneous
  Country: NL (occurrence: NL)
  Receive Date: 20210526
  Receipt Date: 20210604
  Transmission Date: 20210717
  Serious: Yes (Hospitalization)
  Sender: FDA-Public Use
  Company Number: NL-ROCHE-2833991

PATIENT
  Age: 65 Year
  Sex: Female
  Weight: 64 kg

DRUGS (16)
  1. ACETYLCYSTEINE. [Concomitant]
     Active Substance: ACETYLCYSTEINE
     Dosage: INNEMEN 600 MG
  2. ATIMOS [Concomitant]
     Active Substance: FORMOTEROL
     Dosage: ZO NODIG TWEE KEER PER DAG INHALEREN 1 DOSIS
  3. ROSUVASTATINE [Concomitant]
     Active Substance: ROSUVASTATIN
     Dosage: EEN KEER PER DAG 1 STUK
  4. EUTHYROX [Concomitant]
     Active Substance: LEVOTHYROXINE SODIUM
     Dosage: EEN KEER PER DAG 25 MCG
  5. VENTOLINE DISKUS [Concomitant]
     Active Substance: ALBUTEROL SULFATE
     Dosage: ZO NODIG VIER KEER PER DAG
  6. PULMICORT TURBUHALER [Concomitant]
     Active Substance: BUDESONIDE
     Dosage: INDIEN NODIG
  7. KETOCONAZOLE. [Concomitant]
     Active Substance: KETOCONAZOLE
     Dosage: TWEE KEER PER WEEK
  8. FUROSEMIDE. [Concomitant]
     Active Substance: FUROSEMIDE
     Dosage: EEN KEER PER DAG 1 TABLET
  9. PANTOPRAZOLE [Concomitant]
     Active Substance: PANTOPRAZOLE
     Dosage: EEN KEER PER DAG 1 TABLET
  10. PARACETAMOL [Concomitant]
     Active Substance: ACETAMINOPHEN
     Dosage: INNEMEN 1000 MG
  11. VEMURAFENIB. [Suspect]
     Active Substance: VEMURAFENIB
     Indication: LANGERHANS^ CELL HISTIOCYTOSIS
     Dosage: 2 X PER DAG 3 STUKS (2DD 720 MG)
     Route: 065
     Dates: start: 20201006, end: 20201126
  12. KALIUMCHLORIDE [Concomitant]
     Dosage: EEN KEER PER DAG 1 TABLET
  13. FERROFUMARAAT [Concomitant]
     Active Substance: FERROUS FUMARATE
     Dosage: INNEMEN 200 MG
  14. CALCI CHEW D3 [Concomitant]
     Active Substance: CALCIUM CARBONATE\CHOLECALCIFEROL
     Dosage: EEN KEER PER DAG
  15. DEPAKINE CHRONO [Concomitant]
     Active Substance: VALPROATE SODIUM
     Dosage: TWEE KEER PER DAG 150 MG + 500 MG
  16. CLOPIDOGREL [Concomitant]
     Active Substance: CLOPIDOGREL BISULFATE
     Dosage: EEN KEER PER DAG 75 MG

REACTIONS (2)
  - Thrombocytopenia [Recovered/Resolved]
  - Anaemia [Recovered/Resolved]

NARRATIVE: CASE EVENT DATE: 20201126
